FAERS Safety Report 7409823-8 (Version None)
Quarter: 2011Q2

REPORT INFORMATION
  Report Type: 
  Country: None (occurrence: None)
  Receive Date: 20110412
  Receipt Date: 20110408
  Transmission Date: 20111010
  Serious: Yes (Hospitalization, Other)
  Sender: FDA-Public Use
  Company Number: NO-PFIZER INC-2011036198

PATIENT
  Age: 76 Year
  Sex: Male

DRUGS (8)
  1. ALBYL-E [Concomitant]
     Indication: CORONARY ARTERY DISEASE
     Dosage: 75 MG, 1X/DAY
     Route: 048
  2. TRACLEER [Interacting]
     Indication: SYSTEMIC SCLEROSIS
     Dosage: 62.5 MG, BID
     Route: 048
     Dates: start: 20060324, end: 20060401
  3. METFORMIN [Concomitant]
     Indication: DIABETES MELLITUS
     Dosage: 850 MG, 1X/DAY
     Route: 048
  4. LISINOPRIL [Concomitant]
     Indication: CARDIAC FAILURE
     Dosage: 5 MG, 1X/DAY
     Route: 048
  5. TRACLEER [Interacting]
     Dosage: 125 MG, BID
     Route: 048
     Dates: start: 20060401, end: 20110118
  6. TRACLEER [Interacting]
     Dosage: 62.5 MG, BID
     Route: 048
     Dates: start: 20110119, end: 20110201
  7. SILDENAFIL CITRATE [Suspect]
     Dosage: 25 MG, TID
     Route: 048
     Dates: start: 20060401, end: 20110201
  8. LEVOTHYROXINE SODIUM [Concomitant]
     Indication: HYPERTHYROIDISM
     Dosage: 50 UG, 1X/DAY
     Route: 048

REACTIONS (11)
  - ASCITES [None]
  - GAMMA-GLUTAMYLTRANSFERASE INCREASED [None]
  - INFLAMMATION [None]
  - BLOOD ALKALINE PHOSPHATASE INCREASED [None]
  - ABDOMINAL DISTENSION [None]
  - PERITONITIS BACTERIAL [None]
  - PLEURAL EFFUSION [None]
  - HEPATIC FIBROSIS [None]
  - DRUG INTERACTION [None]
  - CHOLELITHIASIS [None]
  - HEPATIC CIRRHOSIS [None]
